FAERS Safety Report 6898248-X (Version None)
Quarter: 2010Q3

REPORT INFORMATION
  Report Type: 
  Country: None (occurrence: None)
  Receive Date: 20100802
  Receipt Date: 20070920
  Transmission Date: 20110219
  Serious: No
  Sender: FDA-Public Use
  Company Number: US-PFIZER INC-2007080859

PATIENT

DRUGS (3)
  1. LYRICA [Suspect]
  2. OXYCONTIN [Concomitant]
  3. OXYCODONE [Concomitant]

REACTIONS (1)
  - RASH [None]
